FAERS Safety Report 15379060 (Version 1)
Quarter: 2018Q3

REPORT INFORMATION
  Report Type: Spontaneous
  Country: US (occurrence: US)
  Receive Date: 20180906
  Receipt Date: 20180906
  Transmission Date: 20181010
  Serious: Yes (Hospitalization, Disabling, Other)
  Sender: FDA-Public Use
  Company Number: None

PATIENT
  Age: 70 Year
  Sex: Female
  Weight: 77.11 kg

DRUGS (11)
  1. VENLAFAXINE [Concomitant]
     Active Substance: VENLAFAXINE HYDROCHLORIDE
  2. GARLIC. [Concomitant]
     Active Substance: GARLIC
  3. VITAMIN B COMPLEX [Concomitant]
     Active Substance: CYANOCOBALAMIN\DEXPANTHENOL\NIACINAMIDE\PYRIDOXINE HYDROCHLORIDE\RIBOFLAVIN 5^-PHOSPHATE SODIUM\THIAMINE HYDROCHLORIDE\VITAMIN B COMPLEX
  4. CINNAMON. [Concomitant]
     Active Substance: CINNAMON
  5. VITAMINS [Concomitant]
     Active Substance: VITAMINS
  6. ZONISAMIDE. [Suspect]
     Active Substance: ZONISAMIDE
     Indication: SEIZURE
     Dosage: ?          QUANTITY:3 DF DOSAGE FORM;?
     Route: 048
     Dates: start: 201403
  7. CALCIUM [Concomitant]
     Active Substance: CALCIUM
  8. TUMERIC PROBIOTIC [Concomitant]
  9. GABAPENTIN. [Concomitant]
     Active Substance: GABAPENTIN
  10. VITAMIN D [Concomitant]
     Active Substance: CHOLECALCIFEROL
  11. CENTRUM SILVER [Concomitant]
     Active Substance: MINERALS\VITAMINS

REACTIONS (4)
  - Nephrolithiasis [None]
  - Palpitations [None]
  - Skin exfoliation [None]
  - Rash [None]
